FAERS Safety Report 11632032 (Version 1)
Quarter: 2015Q4

REPORT INFORMATION
  Report Type: Spontaneous
  Country: US (occurrence: None)
  Receive Date: 20151014
  Receipt Date: 20151014
  Transmission Date: 20160304
  Serious: Yes (Life-Threatening, Hospitalization, Other)
  Sender: FDA-Public Use
  Company Number: None

PATIENT
  Age: 76 Year
  Sex: Male
  Weight: 85.73 kg

DRUGS (7)
  1. WARFIN [Suspect]
     Active Substance: WARFARIN
     Indication: PRODUCT USED FOR UNKNOWN INDICATION
     Dosage: 5 MG ONCE A DAY FOR 6 DAYS
     Route: 048
     Dates: start: 1999, end: 20150826
  2. COMBIGAN [Concomitant]
     Active Substance: BRIMONIDINE TARTRATE\TIMOLOL MALEATE
  3. ENALAPRIL MALEATE. [Concomitant]
     Active Substance: ENALAPRIL MALEATE
  4. AMLODIPINE BESYLATE. [Concomitant]
     Active Substance: AMLODIPINE BESYLATE
  5. ZETIA [Concomitant]
     Active Substance: EZETIMIBE
  6. SIMVASTATIN. [Concomitant]
     Active Substance: SIMVASTATIN
  7. HUMILOG (INSULIN) [Concomitant]

REACTIONS (6)
  - Headache [None]
  - Haemorrhage [None]
  - Amnesia [None]
  - Unresponsive to stimuli [None]
  - Seizure [None]
  - Blood pressure increased [None]

NARRATIVE: CASE EVENT DATE: 20150825
